FAERS Safety Report 5098469-5 (Version None)
Quarter: 2006Q3

REPORT INFORMATION
  Report Type: 
  Country: None (occurrence: None)
  Receive Date: 20060906
  Receipt Date: 20060126
  Transmission Date: 20061208
  Serious: No
  Sender: FDA-Public Use
  Company Number: US-GLAXOSMITHKLINE-A0591082A

PATIENT
  Age: 80 Year
  Sex: Female

DRUGS (11)
  1. REQUIP [Suspect]
     Indication: RESTLESS LEGS SYNDROME
     Dosage: .25MG PER DAY
     Route: 048
     Dates: start: 20060123
  2. NORVASC [Concomitant]
  3. HYDROCHLOROTHIAZIDE [Concomitant]
  4. LISINOPRIL [Concomitant]
  5. ATENOLOL [Concomitant]
  6. ZETIA [Concomitant]
  7. TRICOR [Concomitant]
  8. MULTI-VITAMIN [Concomitant]
  9. OCUVITE [Concomitant]
  10. CALCIUM GLUCONATE [Concomitant]
  11. ASCORBIC ACID [Concomitant]

REACTIONS (2)
  - INSOMNIA [None]
  - PARAESTHESIA [None]
